FAERS Safety Report 10011817 (Version 1)
Quarter: 2014Q1

REPORT INFORMATION
  Report Type: Spontaneous
  Country: US (occurrence: None)
  Receive Date: 20140313
  Receipt Date: 20140313
  Transmission Date: 20141002
  Serious: Yes (Hospitalization)
  Sender: FDA-Public Use
  Company Number: None

PATIENT
  Age: 68 Year
  Sex: Male
  Weight: 104.5 kg

DRUGS (2)
  1. WARFARIN [Suspect]
     Route: 048
     Dates: start: 20130225
  2. SULINDAC [Suspect]
     Route: 048
     Dates: start: 20131211

REACTIONS (7)
  - Haemorrhage [None]
  - Anaemia [None]
  - Gastrointestinal haemorrhage [None]
  - Dizziness [None]
  - Hyperhidrosis [None]
  - Dizziness [None]
  - International normalised ratio abnormal [None]
